FAERS Safety Report 9224427 (Version 1)
Quarter: 2013Q1

REPORT INFORMATION
  Report Type: Spontaneous
  Country: US (occurrence: None)
  Receive Date: 20120914
  Receipt Date: 20120914
  Transmission Date: 20140127
  Serious: Yes (Other)
  Sender: FDA-Public Use
  Company Number: JPI-P-021023

PATIENT
  Age: 41 Year
  Sex: Male
  Weight: 97.52 kg

DRUGS (3)
  1. XYREM [Suspect]
     Indication: CATAPLEXY
     Dosage: (2.25 GM, 2 IN 1 D),
     Route: 048
     Dates: start: 20100922
  2. PYRIDOSTIGMINE [Suspect]
     Indication: PRODUCT USED FOR UNKNOWN INDICATION
  3. AMPHETAMINE, DEXTROAMPHETAMINE MIXED SALTS [Concomitant]

REACTIONS (8)
  - Blood pressure increased [None]
  - Condition aggravated [None]
  - Dehydration [None]
  - Blood glucose decreased [None]
  - Sleep-related eating disorder [None]
  - Presyncope [None]
  - Sleep paralysis [None]
  - Cataplexy [None]
